FAERS Safety Report 4359106-8 (Version None)
Quarter: 2004Q2

REPORT INFORMATION
  Report Type: 
  Country: None (occurrence: None)
  Receive Date: 20040512
  Receipt Date: 20040507
  Transmission Date: 20050107
  Serious: Yes (Hospitalization)
  Sender: FDA-Public Use
  Company Number: 200411531GDS

PATIENT
  Age: 89 Year
  Sex: Male

DRUGS (10)
  1. ASPIRIN [Suspect]
     Indication: PROPHYLAXIS
     Dosage: 100 MG, TOTAL DAILY, ORAL
     Route: 048
     Dates: end: 20040201
  2. PLAVIX [Suspect]
     Indication: PROPHYLAXIS
     Dosage: 75 MG, TOTAL DAILY, ORAL
     Route: 048
     Dates: end: 20040201
  3. MADOPAR [Concomitant]
  4. ACIMETHIN [Concomitant]
  5. ARICEPT [Concomitant]
  6. NEXIUM [Concomitant]
  7. ZOCOR [Concomitant]
  8. PODOMEXEF [Concomitant]
  9. MYDOCALM [Concomitant]
  10. TRAMAL [Concomitant]

REACTIONS (14)
  - ABASIA [None]
  - ASTHENIA [None]
  - BACK PAIN [None]
  - CYST [None]
  - EXTRADURAL HAEMATOMA [None]
  - GENERAL PHYSICAL HEALTH DETERIORATION [None]
  - HAEMOPTYSIS [None]
  - JOINT RANGE OF MOTION DECREASED [None]
  - LUMBAR VERTEBRAL FRACTURE [None]
  - OSTEOPOROTIC FRACTURE [None]
  - PNEUMONIA [None]
  - SPINAL CORD COMPRESSION [None]
  - THORACIC VERTEBRAL FRACTURE [None]
  - URINARY TRACT INFECTION [None]
